FAERS Safety Report 10439734 (Version 1)
Quarter: 2014Q3

REPORT INFORMATION
  Report Type: Spontaneous
  Country: US (occurrence: US)
  Receive Date: 20140908
  Receipt Date: 20140908
  Transmission Date: 20150326
  Serious: No
  Sender: FDA-Public Use
  Company Number: US-BRISTOL-MYERS SQUIBB COMPANY-19355577

PATIENT
  Sex: Male

DRUGS (2)
  1. ABILIFY [Suspect]
     Active Substance: ARIPIPRAZOLE
  2. CLOZAPINE. [Concomitant]
     Active Substance: CLOZAPINE

REACTIONS (6)
  - Panic attack [Unknown]
  - Nasal obstruction [Unknown]
  - Fear of death [Unknown]
  - Dizziness [Unknown]
  - Anxiety [Unknown]
  - Abdominal symptom [Unknown]
